FAERS Safety Report 20065871 (Version 1)
Quarter: 2021Q4

REPORT INFORMATION
  Report Type: Spontaneous
  Country: RU (occurrence: RU)
  Receive Date: 20211114
  Receipt Date: 20211114
  Transmission Date: 20220304
  Serious: Yes (Death, Hospitalization)
  Sender: FDA-Public Use
  Company Number: RU-TEVA-2021-RU-1977875

PATIENT
  Age: 57 Year
  Sex: Female

DRUGS (1)
  1. CISPLATIN [Suspect]
     Active Substance: CISPLATIN
     Route: 065

REACTIONS (2)
  - Colitis ulcerative [Fatal]
  - Enteritis necroticans [Fatal]

NARRATIVE: CASE EVENT DATE: 20190524
